FAERS Safety Report 15685451 (Version 2)
Quarter: 2018Q4

REPORT INFORMATION
  Report Type: Spontaneous
  Country: GB (occurrence: GB)
  Receive Date: 20181204
  Receipt Date: 20181206
  Transmission Date: 20190205
  Serious: Yes (Hospitalization, Other)
  Sender: FDA-Public Use
  Company Number: GB-ASTRAZENECA-2018SF36780

PATIENT
  Age: 84 Year
  Sex: Male

DRUGS (12)
  1. RANITIDINE. [Concomitant]
     Active Substance: RANITIDINE
  2. BUMETANIDE. [Concomitant]
     Active Substance: BUMETANIDE
  3. FERROUS SULFATE. [Concomitant]
     Active Substance: FERROUS SULFATE
  4. COLECALCIFEROL/CALCIUM CARBONATE [Concomitant]
     Active Substance: CALCIUM CARBONATE\CHOLECALCIFEROL
     Dosage: 400 UNIT/1.5G, 2 DF DAILY, TWO CHEWABLE TABLETS PER DAY, PREFERABLY ONE TABLET EACH MORNING AND E...
  5. GABAPENTIN. [Concomitant]
     Active Substance: GABAPENTIN
  6. OMEPRAZOLE. [Suspect]
     Active Substance: OMEPRAZOLE
     Indication: GASTROINTESTINAL DISORDER PROPHYLAXIS
     Route: 048
     Dates: start: 20160809, end: 20180803
  7. FINASTERIDE. [Concomitant]
     Active Substance: FINASTERIDE
  8. OXYCODONE [Concomitant]
     Active Substance: OXYCODONE
     Dosage: 3 MG DAILY, ONE MANE AND 2 NOCTE
  9. AMLODIPINE [Concomitant]
     Active Substance: AMLODIPINE BESYLATE
  10. ISOSORBIDE MONONITRATE. [Concomitant]
     Active Substance: ISOSORBIDE MONONITRATE
     Dosage: 1.5 DF DAILY, ONE AND A HALF DURULE EACH MORNING
  11. ATENOLOL. [Concomitant]
     Active Substance: ATENOLOL
  12. RAMIPRIL. [Concomitant]
     Active Substance: RAMIPRIL

REACTIONS (4)
  - Spinal compression fracture [Recovered/Resolved]
  - Post procedural complication [Unknown]
  - Vertebroplasty [Recovered/Resolved]
  - Fall [Unknown]

NARRATIVE: CASE EVENT DATE: 20180716
